FAERS Safety Report 17201135 (Version 2)
Quarter: 2021Q3

REPORT INFORMATION
  Report Type: Spontaneous
  Country: US (occurrence: US)
  Receive Date: 20191226
  Receipt Date: 20210914
  Transmission Date: 20211014
  Serious: Yes (Disabling, Other)
  Sender: FDA-Public Use
  Company Number: US-TEVA-2019-US-1159185

PATIENT
  Age: 56 Year
  Sex: Female
  Weight: 119 kg

DRUGS (8)
  1. DOCETAXEL ACTAVIS [Suspect]
     Active Substance: DOCETAXEL
     Indication: BREAST CANCER FEMALE
     Dosage: DOSE: 4 CYCLES WITH FREQUENCY EVERY 3 WEEKS
     Route: 065
     Dates: start: 20150403, end: 20150606
  2. NEULASTA [Suspect]
     Active Substance: PEGFILGRASTIM
     Indication: BREAST CANCER FEMALE
     Route: 065
  3. METOPROLOL. [Concomitant]
     Active Substance: METOPROLOL
     Dosage: DOSE: 100 MG
     Route: 065
     Dates: start: 2008
  4. AMLODIPINE [Concomitant]
     Active Substance: AMLODIPINE BESYLATE
     Dosage: DOSE: 5 MG
     Route: 065
     Dates: start: 2009
  5. CYTOXAN [Concomitant]
     Active Substance: CYCLOPHOSPHAMIDE
     Indication: BREAST CANCER FEMALE
     Route: 065
  6. VALSARTAN HCTZ [Concomitant]
     Active Substance: HYDROCHLOROTHIAZIDE\VALSARTAN
     Route: 065
     Dates: start: 2008, end: 2018
  7. DOCETAXEL AVENTIS [Suspect]
     Active Substance: DOCETAXEL
     Indication: BREAST CANCER FEMALE
     Dosage: DOSE: 4 CYCLES WITH FREQUENCY EVERY 3 WEEKS
     Route: 065
     Dates: start: 20150403, end: 20150606
  8. ANASTROZOLE. [Concomitant]
     Active Substance: ANASTROZOLE
     Indication: BREAST CANCER FEMALE
     Route: 065

REACTIONS (15)
  - Arthralgia [Unknown]
  - Neutropenia [Unknown]
  - Constipation [Unknown]
  - Paraesthesia [Unknown]
  - Madarosis [Not Recovered/Not Resolved]
  - Back pain [Unknown]
  - Skin discolouration [Unknown]
  - Alopecia areata [Not Recovered/Not Resolved]
  - Neuropathy peripheral [Recovered/Resolved]
  - Hair colour changes [Not Recovered/Not Resolved]
  - Anaemia [Unknown]
  - Chest pain [Unknown]
  - Skin exfoliation [Unknown]
  - Hair texture abnormal [Not Recovered/Not Resolved]
  - Cancer fatigue [Unknown]

NARRATIVE: CASE EVENT DATE: 2015
